FAERS Safety Report 26057166 (Version 1)
Quarter: 2025Q4

REPORT INFORMATION
  Report Type: Spontaneous
  Country: US (occurrence: US)
  Receive Date: 20251118
  Receipt Date: 20251118
  Transmission Date: 20260118
  Serious: No
  Sender: AMGEN
  Company Number: US-AMGEN-USASP2025224293

PATIENT
  Age: 85 Year
  Sex: Female

DRUGS (2)
  1. KRYSTEXXA [Suspect]
     Active Substance: PEGLOTICASE
     Indication: Product used for unknown indication
     Dosage: 8 MILLIGRAM, Q2WK
     Route: 040
     Dates: start: 20241230
  2. KRYSTEXXA [Suspect]
     Active Substance: PEGLOTICASE
     Dosage: 8 MILLIGRAM, Q2WK
     Route: 040
     Dates: start: 202511

REACTIONS (1)
  - Blood uric acid increased [Unknown]

NARRATIVE: CASE EVENT DATE: 20251101
